FAERS Safety Report 4267689-1 (Version None)
Quarter: 2004Q1

REPORT INFORMATION
  Report Type: 
  Country: None (occurrence: None)
  Receive Date: 20040109
  Receipt Date: 20040105
  Transmission Date: 20041129
  Serious: Yes (Disabling)
  Sender: FDA-Public Use
  Company Number: PHBS2004CA00493

PATIENT

DRUGS (1)
  1. EXELON [Suspect]
     Dosage: 3 MG, BID
     Route: 048

REACTIONS (2)
  - CONFUSIONAL STATE [None]
  - LETHARGY [None]
